FAERS Safety Report 23344192 (Version 4)
Quarter: 2025Q3

REPORT INFORMATION
  Report Type: Report from Study
  Country: US (occurrence: US)
  Receive Date: 20231227
  Receipt Date: 20250822
  Transmission Date: 20251020
  Serious: Yes (Hospitalization, Other)
  Sender: ABBVIE
  Company Number: US-ABBVIE-5560791

PATIENT
  Age: 71 Year
  Sex: Female

DRUGS (2)
  1. HUMIRA [Suspect]
     Active Substance: ADALIMUMAB
     Indication: Crohn^s disease
     Route: 058
     Dates: start: 20220321
  2. HUMIRA [Suspect]
     Active Substance: ADALIMUMAB
     Route: 058
     Dates: start: 202203

REACTIONS (11)
  - Large intestine polyp [Not Recovered/Not Resolved]
  - Gastrooesophageal reflux disease [Recovered/Resolved]
  - Dry mouth [Unknown]
  - Drug ineffective [Unknown]
  - Haemorrhoids [Unknown]
  - Crohn^s disease [Unknown]
  - Intestinal obstruction [Unknown]
  - Gastrooesophageal reflux disease [Unknown]
  - Constipation [Unknown]
  - Gastrointestinal motility disorder [Not Recovered/Not Resolved]
  - Cystocele [Unknown]

NARRATIVE: CASE EVENT DATE: 20230101
